FAERS Safety Report 12060078 (Version 2)
Quarter: 2016Q1

REPORT INFORMATION
  Report Type: Spontaneous
  Country: JP (occurrence: JP)
  Receive Date: 20160210
  Receipt Date: 20160224
  Transmission Date: 20160526
  Serious: Yes (Death)
  Sender: FDA-Public Use
  Company Number: JP-ASTELLAS-2016JP001947AA

PATIENT
  Age: 87 Year
  Sex: Male

DRUGS (1)
  1. FUNGUARD [Suspect]
     Active Substance: MICAFUNGIN SODIUM
     Indication: PRODUCT USED FOR UNKNOWN INDICATION
     Route: 041
     Dates: start: 20160202

REACTIONS (1)
  - Death [Fatal]

NARRATIVE: CASE EVENT DATE: 201602
